FAERS Safety Report 7241955 (Version 3)
Quarter: 2013Q2

REPORT INFORMATION
  Report Type: Spontaneous
  Country: US (occurrence: US)
  Receive Date: 20100111
  Receipt Date: 20130607
  Transmission Date: 20140414
  Serious: Yes (Death)
  Sender: FDA-Public Use
  Company Number: US-PFIZER INC-2010001467

PATIENT
  Age: 54 Year
  Sex: Female

DRUGS (4)
  1. VERAPAMIL HCL [Suspect]
     Route: 048
  2. AMLODIPINE BESILATE [Suspect]
     Route: 048
  3. ZOLPIDEM [Suspect]
     Route: 048
  4. LORAZEPAM [Suspect]
     Route: 048

REACTIONS (1)
  - Completed suicide [Fatal]
